FAERS Safety Report 13036199 (Version 3)
Quarter: 2017Q1

REPORT INFORMATION
  Report Type: Spontaneous
  Country: JP (occurrence: JP)
  Receive Date: 20161216
  Receipt Date: 20170127
  Transmission Date: 20170428
  Serious: Yes (Death, Hospitalization, Other)
  Sender: FDA-Public Use
  Company Number: JP-AMGEN-JPNSP2016178857

PATIENT
  Age: 79 Year
  Sex: Male
  Weight: 50.3 kg

DRUGS (7)
  1. DECADRON [Concomitant]
     Active Substance: DEXAMETHASONE
     Indication: PROPHYLAXIS OF NAUSEA AND VOMITING
     Dosage: 9.9 MG, QD
     Route: 041
     Dates: start: 20161028, end: 20161028
  2. CALCIUM LEVOFOLINATE [Concomitant]
     Active Substance: LEVOLEUCOVORIN CALCIUM
     Indication: METASTASES TO LIVER
     Dosage: 300 MG, Q2WEEKS
     Route: 041
     Dates: start: 20161028, end: 20161028
  3. VECTIBIX [Suspect]
     Active Substance: PANITUMUMAB
     Indication: METASTASES TO LIVER
     Dosage: 300 MG, Q2WK
     Route: 041
     Dates: start: 20161028, end: 20161028
  4. IRINOTECAN HYDROCHLORIDE. [Suspect]
     Active Substance: IRINOTECAN HYDROCHLORIDE
     Indication: METASTASES TO LIVER
     Dosage: 200 MG, Q2WEEKS
     Route: 041
     Dates: start: 20161028, end: 20161028
  5. 5-FU [Concomitant]
     Active Substance: FLUOROURACIL
     Indication: METASTASES TO LIVER
     Dosage: UNK UNK, Q2WEEKS
     Route: 040
     Dates: start: 20161028, end: 20161028
  6. ALOXI [Concomitant]
     Active Substance: PALONOSETRON HYDROCHLORIDE
     Indication: PROPHYLAXIS OF NAUSEA AND VOMITING
     Dosage: 0.75 MG, QD
     Route: 041
     Dates: start: 20161028, end: 20161028
  7. 5-FU [Concomitant]
     Active Substance: FLUOROURACIL
     Dosage: 3500 MG, Q2WEEKS
     Route: 041
     Dates: start: 20161028, end: 20161030

REACTIONS (9)
  - Eczema [Unknown]
  - Malaise [Unknown]
  - Dehydration [Unknown]
  - Neutrophil count decreased [Unknown]
  - Gastrointestinal disorder [Unknown]
  - Staphylococcus test positive [Unknown]
  - Interstitial lung disease [Fatal]
  - Palpitations [Unknown]
  - Staphylococcus test positive [Unknown]

NARRATIVE: CASE EVENT DATE: 201611
